FAERS Safety Report 19739609 (Version 1)
Quarter: 2021Q3

REPORT INFORMATION
  Report Type: Spontaneous
  Country: DE (occurrence: DE)
  Receive Date: 20210824
  Receipt Date: 20210824
  Transmission Date: 20211014
  Serious: Yes (Other)
  Sender: FDA-Public Use
  Company Number: DE-BAYER-2021-192642

PATIENT
  Sex: Male

DRUGS (4)
  1. LENVATINIB [Concomitant]
     Active Substance: LENVATINIB
     Dosage: 8 MG
  2. RAMUCIRUMAB [Concomitant]
     Active Substance: RAMUCIRUMAB
     Dosage: 8 MG
  3. SORAFENIB (RAF KINASE INHIBITOR) [Suspect]
     Active Substance: SORAFENIB
     Indication: HEPATOCELLULAR CARCINOMA
     Dosage: 400 MG DAILY
     Route: 048
  4. ATEZOLIZUMAB;BEVACIZUMAB [Concomitant]
     Dosage: 1200 MG
     Dates: start: 202005

REACTIONS (6)
  - Weight increased [None]
  - Hepatic cancer [None]
  - Metastases to lung [None]
  - Hypertension [None]
  - Metastasis [None]
  - Treatment failure [None]

NARRATIVE: CASE EVENT DATE: 202004
